FAERS Safety Report 17867803 (Version 2)
Quarter: 2020Q2

REPORT INFORMATION
  Report Type: Spontaneous
  Country: BE (occurrence: BE)
  Receive Date: 20200606
  Receipt Date: 20200619
  Transmission Date: 20200714
  Serious: Yes (Other)
  Sender: FDA-Public Use
  Company Number: BE-009507513-2006BEL000336

PATIENT
  Sex: Male

DRUGS (3)
  1. REMERGON [Suspect]
     Active Substance: MIRTAZAPINE
     Indication: AUTISM SPECTRUM DISORDER
  2. REMERGON [Suspect]
     Active Substance: MIRTAZAPINE
     Indication: DEPRESSION
  3. REMERGON [Suspect]
     Active Substance: MIRTAZAPINE
     Indication: ANXIETY

REACTIONS (4)
  - Anxiety [Not Recovered/Not Resolved]
  - Depression [Not Recovered/Not Resolved]
  - Autism spectrum disorder [Not Recovered/Not Resolved]
  - Drug ineffective [Not Recovered/Not Resolved]
